FAERS Safety Report 5371372-9 (Version None)
Quarter: 2007Q2

REPORT INFORMATION
  Report Type: 
  Country: None (occurrence: None)
  Receive Date: 20070626
  Receipt Date: 20070620
  Transmission Date: 20071010
  Serious: Yes (Other)
  Sender: FDA-Public Use
  Company Number: AU-MERCK-0706AUS00079

PATIENT
  Age: 68 Year
  Sex: Male

DRUGS (4)
  1. ZETIA [Suspect]
     Route: 048
  2. INDAPAMIDE AND PERINDOPRIL ERBUMINE [Concomitant]
     Route: 065
  3. CLOPIDOGREL BISULFATE [Concomitant]
     Route: 065
  4. ZOCOR [Concomitant]
     Route: 048

REACTIONS (3)
  - CREATININE RENAL CLEARANCE DECREASED [None]
  - HYPERTENSION [None]
  - RENAL FAILURE ACUTE [None]
